FAERS Safety Report 19055045 (Version 1)
Quarter: 2021Q1

REPORT INFORMATION
  Report Type: Report from Study
  Country: PL (occurrence: PL)
  Receive Date: 20210325
  Receipt Date: 20210325
  Transmission Date: 20210420
  Serious: Yes (Hospitalization, Other)
  Sender: FDA-Public Use
  Company Number: PL-JNJFOC-20210344859

PATIENT
  Age: 79 Year
  Sex: Female

DRUGS (1)
  1. RIVAROXABAN [Suspect]
     Active Substance: RIVAROXABAN
     Indication: CARDIAC OPERATION
     Route: 048

REACTIONS (3)
  - Drug ineffective [Unknown]
  - Gastrointestinal haemorrhage [Unknown]
  - Atrial thrombosis [Unknown]
